FAERS Safety Report 9472574 (Version 1)
Quarter: 2013Q3

REPORT INFORMATION
  Report Type: Report from Study
  Country: BR (occurrence: BR)
  Receive Date: 20130823
  Receipt Date: 20130823
  Transmission Date: 20140515
  Serious: Yes (Death, Hospitalization, Other)
  Sender: FDA-Public Use
  Company Number: PHHY2013BR091255

PATIENT
  Sex: Female
  Weight: 68 kg

DRUGS (4)
  1. ACLASTA [Suspect]
     Indication: OSTEOPOROSIS
     Dosage: 5 MG, UNK
     Route: 042
     Dates: start: 2011
  2. ACLASTA [Suspect]
     Dosage: 5 MG, UNK
     Route: 042
     Dates: start: 2013
  3. ALOIS [Concomitant]
     Dosage: UNK
     Dates: start: 2010, end: 2013
  4. ABLOK PLUS [Concomitant]
     Dosage: UNK
     Dates: end: 2013

REACTIONS (2)
  - Sepsis [Fatal]
  - Leukaemia [Fatal]
